FAERS Safety Report 9758123 (Version 1)
Quarter: 2013Q4

REPORT INFORMATION
  Report Type: Spontaneous
  Country: US (occurrence: None)
  Receive Date: 20131213
  Receipt Date: 20131213
  Transmission Date: 20140711
  Serious: Yes (Other)
  Sender: FDA-Public Use
  Company Number: None

PATIENT
  Age: 68 Year
  Sex: Female
  Weight: 58.06 kg

DRUGS (1)
  1. PROPRANOLOL [Suspect]
     Indication: ESSENTIAL TREMOR
     Dosage: 1  ONCE DAILY
     Dates: start: 20131019, end: 20131115

REACTIONS (4)
  - Diarrhoea [None]
  - Weight decreased [None]
  - Product substitution issue [None]
  - Product quality issue [None]
